FAERS Safety Report 18748678 (Version 3)
Quarter: 2021Q1

REPORT INFORMATION
  Report Type: Report from Study
  Country: CA (occurrence: CA)
  Receive Date: 20210115
  Receipt Date: 20210329
  Transmission Date: 20210419
  Serious: Yes (Hospitalization, Other)
  Sender: FDA-Public Use
  Company Number: CA-SHIRE-CA202031605

PATIENT
  Age: 66 Year
  Sex: Female

DRUGS (36)
  1. TEDUGLUTIDE [Suspect]
     Active Substance: TEDUGLUTIDE
     Indication: SHORT-BOWEL SYNDROME
     Dosage: 2.80 MILLIGRAM, 1X/DAY:QD
     Route: 065
     Dates: start: 20190605
  2. TEDUGLUTIDE [Suspect]
     Active Substance: TEDUGLUTIDE
     Dosage: 2 UNK
     Route: 065
  3. MAGNESIUM [Concomitant]
     Active Substance: MAGNESIUM
     Indication: PRODUCT USED FOR UNKNOWN INDICATION
     Dosage: 420 MILLIGRAM, BID
     Route: 048
  4. PANTOLOC [PANTOPRAZOLE] [Concomitant]
     Active Substance: PANTOPRAZOLE SODIUM
     Dosage: 40 MILLIGRAM
  5. TEDUGLUTIDE [Suspect]
     Active Substance: TEDUGLUTIDE
     Indication: SHORT-BOWEL SYNDROME
     Dosage: 2.80 MILLIGRAM, 1X/DAY:QD
     Route: 065
     Dates: start: 20190605
  6. TEDUGLUTIDE [Suspect]
     Active Substance: TEDUGLUTIDE
     Dosage: 2 UNK
     Route: 065
  7. TEDUGLUTIDE [Suspect]
     Active Substance: TEDUGLUTIDE
     Dosage: 2 UNK
     Route: 065
  8. PN [Concomitant]
     Active Substance: PROTOPORPHYRIN DISODIUM
     Indication: PRODUCT USED FOR UNKNOWN INDICATION
     Dosage: 1800 MILLILITER, 6/7 DAYS OVER 12 HRS
  9. PANTOLOC [PANTOPRAZOLE] [Concomitant]
     Active Substance: PANTOPRAZOLE SODIUM
     Indication: PRODUCT USED FOR UNKNOWN INDICATION
     Dosage: 40 MILLIGRAM, QD
  10. VITAMIN D [COLECALCIFEROL] [Concomitant]
     Active Substance: CHOLECALCIFEROL
     Indication: PRODUCT USED FOR UNKNOWN INDICATION
     Dosage: 4000 INTERNATIONAL UNIT, QD
  11. HYDROMORPHONE [Concomitant]
     Active Substance: HYDROMORPHONE
     Dosage: 2 MILLIGRAM, Q4HR
     Route: 042
     Dates: end: 2019
  12. ZOFRAN [Concomitant]
     Active Substance: ONDANSETRON HYDROCHLORIDE
     Indication: NAUSEA
     Dosage: 4?8 MILLIGRAM
     Route: 048
  13. URSODIOL. [Concomitant]
     Active Substance: URSODIOL
     Indication: PRODUCT USED FOR UNKNOWN INDICATION
     Dosage: 250 MILLIGRAM, TID
     Dates: end: 201910
  14. TEDUGLUTIDE [Suspect]
     Active Substance: TEDUGLUTIDE
     Dosage: 2.80 MILLIGRAM, 1X/DAY:QD
     Route: 065
     Dates: start: 20190605
  15. LOMOTIL [LOPERAMIDE HYDROCHLORIDE] [Concomitant]
     Active Substance: LOPERAMIDE HYDROCHLORIDE
     Indication: PRODUCT USED FOR UNKNOWN INDICATION
     Dosage: 2 DOSAGE FORM, QID
     Dates: end: 2019
  16. TEDUGLUTIDE [Suspect]
     Active Substance: TEDUGLUTIDE
     Dosage: 2.80 MILLIGRAM, 1X/DAY:QD
     Route: 065
     Dates: start: 20190605
  17. MIRABEGRON [Concomitant]
     Active Substance: MIRABEGRON
     Indication: PRODUCT USED FOR UNKNOWN INDICATION
     Dosage: 50 MILLIGRAM, QD
  18. GRAVOL [Concomitant]
     Active Substance: DIMENHYDRINATE
     Indication: PRODUCT USED FOR UNKNOWN INDICATION
     Dosage: 50 MILLIGRAM
     Route: 030
  19. HYDROMORPHONE [Concomitant]
     Active Substance: HYDROMORPHONE
     Dosage: 2 MILLIGRAM, Q4HR
     Route: 030
     Dates: end: 2019
  20. CODEINE [Concomitant]
     Active Substance: CODEINE
     Indication: PRODUCT USED FOR UNKNOWN INDICATION
     Dosage: 60 MILLIGRAM, TID
  21. LOPERAMIDE [Concomitant]
     Active Substance: LOPERAMIDE
     Indication: PRODUCT USED FOR UNKNOWN INDICATION
     Dosage: QID2 MILLIGRAM, QID
     Dates: end: 2019
  22. BUTRANS [Concomitant]
     Active Substance: BUPRENORPHINE
     Indication: PAIN
     Dosage: UNK
     Dates: start: 201803
  23. NORMAL SALINE [Concomitant]
     Active Substance: SODIUM CHLORIDE
     Indication: PRODUCT USED FOR UNKNOWN INDICATION
     Dosage: 1000 MILLILITER, 1/7 DAYS OVER 4 HOURS
     Route: 042
  24. MVI [VITAMINS NOS] [Concomitant]
     Indication: PRODUCT USED FOR UNKNOWN INDICATION
     Dosage: 1 DAY
  25. HYDROMORPHONE [Concomitant]
     Active Substance: HYDROMORPHONE
     Indication: PAIN
     Dosage: 2 MILLIGRAM, PRN
     Route: 048
  26. TEDUGLUTIDE [Suspect]
     Active Substance: TEDUGLUTIDE
     Indication: SHORT-BOWEL SYNDROME
     Dosage: 2.80 MILLIGRAM, 1X/DAY:QD
     Route: 065
     Dates: start: 20190605
  27. TEDUGLUTIDE [Suspect]
     Active Substance: TEDUGLUTIDE
     Dosage: 2.80 MILLIGRAM, 1X/DAY:QD
     Route: 065
     Dates: start: 20190605
  28. TEDUGLUTIDE [Suspect]
     Active Substance: TEDUGLUTIDE
     Dosage: 2.80 MILLIGRAM, 1X/DAY:QD
     Route: 065
     Dates: start: 20190605
  29. GRAVOL [Concomitant]
     Active Substance: DIMENHYDRINATE
     Dosage: 50 MILLIGRAM, Q4HR
     Route: 042
  30. TEDUGLUTIDE [Suspect]
     Active Substance: TEDUGLUTIDE
     Indication: SHORT-BOWEL SYNDROME
     Dosage: 2.80 MILLIGRAM, 1X/DAY:QD
     Route: 065
     Dates: start: 20190605
  31. TEDUGLUTIDE [Suspect]
     Active Substance: TEDUGLUTIDE
     Dosage: 2 UNK
     Route: 065
  32. TPN [NICOTINAMIDE;PYRIDOXINE HYDROCHLORIDE;TYROSINE] [Concomitant]
     Active Substance: NIACINAMIDE\PYRIDOXINE HYDROCHLORIDE\TYROSINE
     Indication: PRODUCT USED FOR UNKNOWN INDICATION
     Dosage: 1800 MILLILITER, 6/7 DAYS OVER 12 HRS
  33. SYNTHROID [Concomitant]
     Active Substance: LEVOTHYROXINE SODIUM
     Indication: PRODUCT USED FOR UNKNOWN INDICATION
     Dosage: 0.112 MILLIGRAM
  34. VITAMIN B1 [Concomitant]
     Active Substance: THIAMINE HYDROCHLORIDE
     Indication: PRODUCT USED FOR UNKNOWN INDICATION
     Dosage: 100 MILLIGRAM, QD
  35. VITAMIN B12 [Concomitant]
     Active Substance: CYANOCOBALAMIN
     Indication: PRODUCT USED FOR UNKNOWN INDICATION
     Dosage: UNK, MONTHLY
     Route: 050
  36. IRON [Concomitant]
     Active Substance: IRON
     Indication: HAEMOGLOBIN DECREASED
     Dosage: UNK UNK, PRN
     Dates: start: 201810

REACTIONS (9)
  - Sepsis [Recovering/Resolving]
  - Vomiting [Recovering/Resolving]
  - Abdominal infection [Recovering/Resolving]
  - Hypertension [Unknown]
  - Condition aggravated [Recovered/Resolved]
  - Dehydration [Recovered/Resolved]
  - Diarrhoea [Recovering/Resolving]
  - Hospitalisation [Unknown]
  - Pain [Unknown]

NARRATIVE: CASE EVENT DATE: 20200916
